FAERS Safety Report 4304435-7 (Version None)
Quarter: 2004Q1

REPORT INFORMATION
  Report Type: 
  Country: None (occurrence: None)
  Receive Date: 20040224
  Receipt Date: 20040210
  Transmission Date: 20041129
  Serious: Yes (Other)
  Sender: FDA-Public Use
  Company Number: A-CH2003-02558

PATIENT
  Age: 59 Year
  Sex: Female
  Weight: 77 kg

DRUGS (15)
  1. TRACLEER [Suspect]
     Indication: PULMONARY HYPERTENSION
     Dosage: SEE IMAGE
     Route: 048
     Dates: start: 20030218, end: 20030312
  2. TRACLEER [Suspect]
     Indication: PULMONARY HYPERTENSION
     Dosage: SEE IMAGE
     Route: 048
     Dates: start: 20030313, end: 20030411
  3. TRACLEER [Suspect]
     Indication: PULMONARY HYPERTENSION
     Dosage: SEE IMAGE
     Route: 048
     Dates: start: 20030515, end: 20030901
  4. TRACLEER [Suspect]
     Indication: PULMONARY HYPERTENSION
     Dosage: SEE IMAGE
     Route: 048
     Dates: start: 20030901, end: 20031201
  5. TRACLEER [Suspect]
     Indication: PULMONARY HYPERTENSION
     Dosage: SEE IMAGE
     Route: 048
     Dates: start: 20031201, end: 20040122
  6. TRACLEER [Suspect]
     Indication: PULMONARY HYPERTENSION
     Dosage: SEE IMAGE
     Route: 048
     Dates: start: 20031201, end: 20040205
  7. ASPIRIN [Concomitant]
  8. ATORVASTATIN CALCIUM [Concomitant]
  9. MAGNESIUM [Concomitant]
  10. LEVOTHYROXINE SODIUM [Concomitant]
  11. PHENPROCOUMON (PHENPROCOUMON) [Concomitant]
  12. ISOPTIN [Concomitant]
  13. OSYROL-LASIX (FUROSEMIDE, SPIRONOLACTONE) [Concomitant]
  14. KALINOR-BRAUSETABLETTEN (POTASSIUM CITRATE, POTASSIUM CARBONATE) [Concomitant]
  15. VIANI (FLUTICASONE PROPIONATE, SALMETEROL XINAFOATE) [Concomitant]

REACTIONS (6)
  - ALANINE AMINOTRANSFERASE INCREASED [None]
  - ASPARTATE AMINOTRANSFERASE INCREASED [None]
  - BLOOD ALKALINE PHOSPHATASE INCREASED [None]
  - BLOOD BILIRUBIN INCREASED [None]
  - DYSPNOEA EXACERBATED [None]
  - LIVER FUNCTION TEST ABNORMAL [None]
